FAERS Safety Report 7470836-1 (Version None)
Quarter: 2011Q2

REPORT INFORMATION
  Report Type: 
  Country: None (occurrence: None)
  Receive Date: 20110502
  Receipt Date: 20101229
  Transmission Date: 20111010
  Serious: Yes (Other)
  Sender: FDA-Public Use
  Company Number: IMP_05148_2010

PATIENT
  Sex: Male
  Weight: 106.5953 kg

DRUGS (1)
  1. TAMSULOSIN HCL [Suspect]
     Indication: PRODUCT USED FOR UNKNOWN INDICATION
     Dosage: (0.4 MG QD ORAL)
     Route: 048

REACTIONS (2)
  - NIGHTMARE [None]
  - HALLUCINATION [None]
